FAERS Safety Report 17942709 (Version 1)
Quarter: 2020Q2

REPORT INFORMATION
  Report Type: Spontaneous
  Country: US (occurrence: US)
  Receive Date: 20200625
  Receipt Date: 20200625
  Transmission Date: 20200714
  Serious: Yes (Hospitalization)
  Sender: FDA-Public Use
  Company Number: US-EMCURE PHARMACEUTICALS LTD-2020-EPL-000766

PATIENT
  Age: 61 Year
  Sex: Male

DRUGS (12)
  1. TACROLIMUS. [Interacting]
     Active Substance: TACROLIMUS
     Dosage: DOSE DECREASED TO 6-8 NG/ML
  2. PREDNISONE. [Suspect]
     Active Substance: PREDNISONE
     Indication: IMMUNOSUPPRESSION
     Dosage: 5 MILLIGRAM PER DAY
  3. OSELTAMIVIR [Concomitant]
     Active Substance: OSELTAMIVIR
     Indication: INFLUENZA
     Dosage: UNK
  4. VANCOMYCIN [Concomitant]
     Active Substance: VANCOMYCIN
     Indication: EVIDENCE BASED TREATMENT
  5. PIPERACILLIN?TAZOBACTAM [Concomitant]
     Indication: EVIDENCE BASED TREATMENT
  6. GANCICLOVIR. [Concomitant]
     Active Substance: GANCICLOVIR
     Indication: OPPORTUNISTIC INFECTION PROPHYLAXIS
  7. IMMUNOGLOBULIN [Concomitant]
     Indication: COVID-19 PNEUMONIA
     Dosage: 40 GRAM 1 DOSE
     Route: 042
  8. AZITHROMYCIN ANHYDROUS. [Concomitant]
     Active Substance: AZITHROMYCIN ANHYDROUS
     Indication: EVIDENCE BASED TREATMENT
  9. TACROLIMUS. [Suspect]
     Active Substance: TACROLIMUS
     Indication: IMMUNOSUPPRESSION
     Dosage: GOAL LEVEL OF 8 NG/ML
  10. LOPINAVIR/RITONAVIR [Interacting]
     Active Substance: LOPINAVIR\RITONAVIR
     Indication: COVID-19 PNEUMONIA
     Dosage: 1 DOSAGE FORM, BID
  11. ATOVAQUONE. [Concomitant]
     Active Substance: ATOVAQUONE
     Indication: OPPORTUNISTIC INFECTION PROPHYLAXIS
  12. NITAZOXANIDE [Concomitant]
     Active Substance: NITAZOXANIDE
     Indication: COVID-19 PNEUMONIA
     Dosage: 500 MILLIGRAM EVERY 12 HOURS FOR 7 DAY

REACTIONS (3)
  - COVID-19 pneumonia [Recovering/Resolving]
  - Drug clearance decreased [Unknown]
  - Labelled drug-drug interaction medication error [Unknown]
